FAERS Safety Report 14096858 (Version 2)
Quarter: 2017Q4

REPORT INFORMATION
  Report Type: Spontaneous
  Country: US (occurrence: US)
  Receive Date: 20171016
  Receipt Date: 20171119
  Transmission Date: 20180321
  Serious: Yes (Hospitalization, Other)
  Sender: FDA-Public Use
  Company Number: US-DSJP-DSU-2017-139316

PATIENT

DRUGS (1)
  1. BENICAR HCT [Suspect]
     Active Substance: HYDROCHLOROTHIAZIDE\OLMESARTAN MEDOXOMIL
     Indication: PRODUCT USED FOR UNKNOWN INDICATION
     Dosage: 40/12.5 MG HALF  TABLET, QD
     Route: 048
     Dates: start: 20080108, end: 20161231

REACTIONS (7)
  - Cholecystitis [Recovered/Resolved]
  - Liver function test increased [Unknown]
  - Gastrooesophageal reflux disease [Unknown]
  - Drug administration error [Unknown]
  - Sprue-like enteropathy [Unknown]
  - Hiatus hernia [Unknown]
  - Polyp [Unknown]

NARRATIVE: CASE EVENT DATE: 201301
